FAERS Safety Report 7494598-7 (Version None)
Quarter: 2011Q2

REPORT INFORMATION
  Report Type: 
  Country: None (occurrence: None)
  Receive Date: 20110520
  Receipt Date: 20110509
  Transmission Date: 20111010
  Serious: Yes (Other)
  Sender: FDA-Public Use
  Company Number: PHHY2011BR40336

PATIENT
  Sex: Male

DRUGS (1)
  1. SANDOSTATIN LAR [Suspect]
     Indication: ACROMEGALY
     Dosage: 30 MG, UNK
     Route: 030

REACTIONS (5)
  - HYPERHIDROSIS [None]
  - ARTHRALGIA [None]
  - HYPERGLYCAEMIA [None]
  - HYPERTENSION [None]
  - SLEEP APNOEA SYNDROME [None]
